FAERS Safety Report 26192936 (Version 1)
Quarter: 2025Q4

REPORT INFORMATION
  Report Type: Spontaneous
  Country: MY (occurrence: MY)
  Receive Date: 20251223
  Receipt Date: 20251223
  Transmission Date: 20260117
  Serious: Yes (Life-Threatening, Hospitalization)
  Sender: RegCon Holdings
  Company Number: MY-REGCON-2025REG00061

PATIENT
  Age: 2 Year
  Sex: Male

DRUGS (1)
  1. BACLOFEN [Suspect]
     Active Substance: BACLOFEN
     Dosage: SYRUP 10 MG/ML IN 100ML BOTTLE, CONTAINING 25% SYRUP, ESTIMATED INGESTION OF 300 MG
     Route: 048

REACTIONS (9)
  - Toxicity to various agents [Unknown]
  - Electrocardiogram QT prolonged [Unknown]
  - Bradypnoea [Recovering/Resolving]
  - Bradycardia [Recovering/Resolving]
  - Areflexia [Recovering/Resolving]
  - Hypothermia [Recovered/Resolved]
  - Coma [Recovered/Resolved]
  - Hypotonia [Recovered/Resolved]
  - Hypotension [Recovered/Resolved]
